FAERS Safety Report 26087759 (Version 1)
Quarter: 2025Q4

REPORT INFORMATION
  Report Type: Spontaneous
  Country: EU (occurrence: EU)
  Receive Date: 20251125
  Receipt Date: 20251125
  Transmission Date: 20260117
  Serious: Yes (Hospitalization)
  Sender: PFIZER
  Company Number: None

PATIENT
  Age: 85 Year
  Sex: Female
  Weight: 51 kg

DRUGS (5)
  1. DOXYCYCLINE HYCLATE [Suspect]
     Active Substance: DOXYCYCLINE HYCLATE
     Indication: Skin infection
     Dosage: 100 MG, 2X/DAY (EVERY 12 HOURS)
     Route: 048
     Dates: start: 20250812, end: 20250818
  2. FLUCONAZOLE [Suspect]
     Active Substance: FLUCONAZOLE
     Indication: Skin candida
     Dosage: 100 MG, DAILY (EVERY 24 HOURS)
     Route: 048
     Dates: start: 20250822, end: 20250901
  3. PIPERACILLIN SODIUM\TAZOBACTAM SODIUM [Suspect]
     Active Substance: PIPERACILLIN SODIUM\TAZOBACTAM SODIUM
     Indication: Skin infection
     Dosage: 12 G/1.5 G, DAILY (IN CONTINUOUS INFUSION WITH AN INFUSER AT HOME)
     Route: 042
     Dates: start: 20250818, end: 20250825
  4. PIPERACILLIN SODIUM\TAZOBACTAM SODIUM [Suspect]
     Active Substance: PIPERACILLIN SODIUM\TAZOBACTAM SODIUM
     Dosage: UNK
     Route: 042
     Dates: start: 20250826, end: 20250901
  5. AMOXICILLIN [Suspect]
     Active Substance: AMOXICILLIN
     Indication: Skin infection
     Dosage: 1 G, 3X/DAY (EVERY 8 HOURS)
     Route: 048
     Dates: start: 20250812, end: 20250818

REACTIONS (1)
  - Clostridium difficile colitis [Recovered/Resolved]

NARRATIVE: CASE EVENT DATE: 20250913
